FAERS Safety Report 24593297 (Version 1)
Quarter: 2024Q4

REPORT INFORMATION
  Report Type: Spontaneous
  Country: US (occurrence: None)
  Receive Date: 20241107
  Receipt Date: 20241107
  Transmission Date: 20250115
  Serious: No
  Sender: Public
  Company Number: None

PATIENT
  Age: 60 Year
  Sex: Female

DRUGS (3)
  1. LENALIDOMIDE [Suspect]
     Active Substance: LENALIDOMIDE
     Indication: Plasma cell myeloma
     Dosage: FREQUENCY : DAILY;?
     Route: 048
     Dates: start: 20241010
  2. DARZALEX [Suspect]
     Active Substance: DARATUMUMAB
  3. VELCADE [Suspect]
     Active Substance: BORTEZOMIB

REACTIONS (5)
  - Fatigue [None]
  - Rash [None]
  - Hypoaesthesia oral [None]
  - Hypoaesthesia [None]
  - Therapy change [None]

NARRATIVE: CASE EVENT DATE: 20241104
